FAERS Safety Report 4892227-X (Version None)
Quarter: 2006Q1

REPORT INFORMATION
  Report Type: 
  Country: None (occurrence: None)
  Receive Date: 20060123
  Receipt Date: 20060109
  Transmission Date: 20060701
  Serious: Yes (Disabling, Other)
  Sender: FDA-Public Use
  Company Number: 2006005528

PATIENT
  Sex: Female

DRUGS (6)
  1. RELPAX [Suspect]
     Indication: MIGRAINE
     Dosage: INHALATION
     Route: 055
  2. IBUPROFEN [Suspect]
     Indication: MIGRAINE
     Dosage: ORAL
     Route: 048
  3. ACETYLSALICYLATE LYSINE (ACETYLSALICYLATE LYSINE) [Suspect]
     Indication: MIGRAINE
     Dosage: ORAL
     Route: 048
  4. MIGPRIV (ACETYLSALICYLIC ACID METOCLOPRAMIDE) [Suspect]
     Indication: MIGRAINE
     Dosage: ORAL
     Route: 048
  5. PROPOFAN (CAFFEINE, CARBASALATE CALCIUM, CHLORPHENAMINE MALEATE, DEXTR [Suspect]
     Dosage: ORAL
     Route: 048
  6. SORIATANE [Concomitant]

REACTIONS (2)
  - CLEFT LIP [None]
  - DRUG EXPOSURE DURING PREGNANCY [None]
